FAERS Safety Report 9526911 (Version 2)
Quarter: 2013Q3

REPORT INFORMATION
  Report Type: Spontaneous
  Country: DK (occurrence: DK)
  Receive Date: 20130916
  Receipt Date: 20130916
  Transmission Date: 20140515
  Serious: Yes (Hospitalization)
  Sender: FDA-Public Use
  Company Number: PHHY2012DK079416

PATIENT
  Age: 16 Year
  Sex: Female

DRUGS (1)
  1. LINDYNETTE [Suspect]
     Indication: CONTRACEPTION
     Dosage: 1 DF, DAILY
     Route: 048
     Dates: start: 20101019, end: 20110919

REACTIONS (5)
  - Renal vein thrombosis [Recovering/Resolving]
  - Thrombosis [Recovering/Resolving]
  - Back pain [Unknown]
  - Pain in extremity [Unknown]
  - Local swelling [Unknown]
